FAERS Safety Report 13693410 (Version 1)
Quarter: 2017Q2

REPORT INFORMATION
  Report Type: Spontaneous
  Country: US (occurrence: US)
  Receive Date: 20170627
  Receipt Date: 20170627
  Transmission Date: 20170830
  Serious: Yes (Death)
  Sender: FDA-Public Use
  Company Number: US-ALKERMES INC.-ALK-2017-002468

PATIENT
  Age: 33 Year
  Sex: Male
  Weight: 86.17 kg

DRUGS (1)
  1. VIVITROL [Suspect]
     Active Substance: NALTREXONE
     Indication: DRUG USE DISORDER
     Dosage: 380 MG, QMO
     Route: 030
     Dates: start: 201704

REACTIONS (4)
  - Overdose [Fatal]
  - Dyspnoea [Not Recovered/Not Resolved]
  - Immobile [Not Recovered/Not Resolved]
  - Moaning [Not Recovered/Not Resolved]

NARRATIVE: CASE EVENT DATE: 20170513
